FAERS Safety Report 9882610 (Version 2)
Quarter: 2014Q2

REPORT INFORMATION
  Report Type: Spontaneous
  Country: GB (occurrence: GB)
  Receive Date: 20140207
  Receipt Date: 20140417
  Transmission Date: 20141212
  Serious: Yes (Life-Threatening, Hospitalization)
  Sender: FDA-Public Use
  Company Number: GB-ACTAVIS-2014-01895

PATIENT
  Age: 66 Year
  Sex: Female

DRUGS (12)
  1. SPIRONOLACTONE (UNKNOWN) [Suspect]
     Indication: ASCITES
     Dosage: 200MG ONCE DAILY. REACTION BEGAN 3 DAYS AFTER INCREASE TO 200MG DAILY.
     Route: 048
     Dates: end: 20140102
  2. SPIRONOLACTONE (UNKNOWN) [Suspect]
     Indication: HEPATIC CIRRHOSIS
     Dosage: 100 MG, DAILY, RECEIVED 2 WEEKS OF 100MG ONCE DAILY
     Route: 048
     Dates: start: 201312
  3. BENDROFLUMETHIAZIDE [Concomitant]
     Indication: PRODUCT USED FOR UNKNOWN INDICATION
     Dosage: 2.5 MG, QAM; REPEAT PRESCRIPTION
     Route: 065
  4. SUCRALFATE [Concomitant]
     Indication: PRODUCT USED FOR UNKNOWN INDICATION
     Dosage: UNK
     Route: 065
  5. URSODEOXYCHOLIC ACID [Concomitant]
     Indication: PRODUCT USED FOR UNKNOWN INDICATION
     Dosage: 250 MG, TID; REPEAT PRESCRIPTION
     Route: 065
  6. VALSARTAN [Concomitant]
     Indication: PRODUCT USED FOR UNKNOWN INDICATION
     Dosage: 40 MG, DAILY; REPEAT PRESCRIPTION
     Route: 065
  7. ANTEPSIN [Concomitant]
     Indication: PRODUCT USED FOR UNKNOWN INDICATION
     Dosage: 5 ML, QID; REPEAT PRESCRIPTION
     Route: 048
  8. HYDROMOL                           /06335901/ [Concomitant]
     Indication: PRODUCT USED FOR UNKNOWN INDICATION
     Dosage: 100 G, UNK; REPEAT PRESCRIPTION. APPLY TO SKIN OR USE AS SOAP SUBSTITUTE
     Route: 061
  9. PROPRANOLOL [Concomitant]
     Indication: HYPERTENSION
     Dosage: 40 MG, DAILY; REPEAT PRESCRIPTION
     Route: 065
  10. PROPRANOLOL [Concomitant]
     Dosage: 10 MG, BID; REPEAT PRESCRIPTION
     Route: 065
  11. CETOMACROGOL                       /03594201/ [Concomitant]
     Indication: PRODUCT USED FOR UNKNOWN INDICATION
     Dosage: 500 G, UNK; REPEAT PRESCRIPTION. APPLY 4-5 TIMES A DAY.
     Route: 065
  12. FUROSEMIDE [Concomitant]
     Indication: PRODUCT USED FOR UNKNOWN INDICATION
     Dosage: 40 MG, QAM
     Route: 065

REACTIONS (4)
  - Stevens-Johnson syndrome [Recovering/Resolving]
  - Rash pruritic [Recovering/Resolving]
  - Rash erythematous [Recovering/Resolving]
  - Rash maculo-papular [Recovering/Resolving]
